FAERS Safety Report 6846081-7 (Version None)
Quarter: 2010Q3

REPORT INFORMATION
  Report Type: 
  Country: None (occurrence: None)
  Receive Date: 20100715
  Receipt Date: 20071031
  Transmission Date: 20110219
  Serious: Yes (Other)
  Sender: FDA-Public Use
  Company Number: US-PFIZER INC-2007074629

PATIENT
  Sex: Female
  Weight: 70.5 kg

DRUGS (6)
  1. CHANTIX [Suspect]
     Indication: SMOKING CESSATION THERAPY
     Dates: start: 20070801
  2. ANTIHYPERTENSIVES [Concomitant]
  3. ANTIDEPRESSANTS [Concomitant]
  4. ACETYLSALICYLIC ACID [Concomitant]
  5. ONE-A-DAY [Concomitant]
  6. MINERALS NOS [Concomitant]

REACTIONS (2)
  - DEAFNESS [None]
  - NAUSEA [None]
